FAERS Safety Report 26037089 (Version 1)
Quarter: 2025Q4

REPORT INFORMATION
  Report Type: Spontaneous
  Country: US (occurrence: US)
  Receive Date: 20251112
  Receipt Date: 20251112
  Transmission Date: 20260117
  Serious: No
  Sender: PARATEK PHARMACEUTICALS
  Company Number: US-PARATEK PHARMACEUTICALS, INC.-2025PTK00180

PATIENT
  Sex: Female

DRUGS (2)
  1. OMADACYCLINE [Suspect]
     Active Substance: OMADACYCLINE
     Indication: Mycobacterium fortuitum infection
     Dosage: UNK
  2. OMADACYCLINE [Suspect]
     Active Substance: OMADACYCLINE
     Indication: Device related infection

REACTIONS (2)
  - Tooth discolouration [Unknown]
  - Off label use [Unknown]
